FAERS Safety Report 18241501 (Version 1)
Quarter: 2020Q3

REPORT INFORMATION
  Report Type: Spontaneous
  Country: DE (occurrence: DE)
  Receive Date: 20200908
  Receipt Date: 20200908
  Transmission Date: 20201103
  Serious: Yes (Other)
  Sender: FDA-Public Use
  Company Number: DE-GLAXOSMITHKLINE-DE2020176538

PATIENT
  Age: 72 Year
  Sex: Female

DRUGS (2)
  1. VOLTAREN DOLO LIQUID 25MG [Suspect]
     Active Substance: DICLOFENAC POTASSIUM
     Dosage: 2 DF, QD
  2. VOLTAREN DOLO LIQUID 25MG [Suspect]
     Active Substance: DICLOFENAC POTASSIUM
     Indication: PRODUCT USED FOR UNKNOWN INDICATION
     Dosage: 1 DF, QD

REACTIONS (3)
  - Ileus paralytic [Not Recovered/Not Resolved]
  - Cardiac disorder [Unknown]
  - Constipation [Not Recovered/Not Resolved]
